FAERS Safety Report 6501506-1 (Version None)
Quarter: 2009Q4

REPORT INFORMATION
  Report Type: 
  Country: None (occurrence: None)
  Receive Date: 20091216
  Receipt Date: 20091208
  Transmission Date: 20100525
  Serious: Yes (Hospitalization)
  Sender: FDA-Public Use
  Company Number: A0835052A

PATIENT
  Age: 67 Year
  Sex: Female
  Weight: 100.9 kg

DRUGS (14)
  1. REQUIP XL [Suspect]
     Indication: PARKINSON'S DISEASE
     Route: 048
     Dates: start: 20090101, end: 20090101
  2. PROVIGIL [Suspect]
     Indication: PARKINSON'S DISEASE
     Dosage: 200MG TWICE PER DAY
     Route: 048
     Dates: start: 20040101
  3. NAPROXEN [Concomitant]
     Dates: end: 20091101
  4. MIRAPEX [Concomitant]
     Dates: start: 20041101, end: 20081101
  5. SINEMET [Concomitant]
     Dates: start: 20040101
  6. LYRICA [Concomitant]
     Dates: start: 20090401
  7. OXYMORPHONE HYDROCHLORIDE [Concomitant]
     Dates: start: 20090401
  8. NEXIUM [Concomitant]
     Dates: start: 20080101
  9. LACTULOSE [Concomitant]
     Dates: start: 20091001
  10. COLCHICINE [Concomitant]
     Dates: start: 20090701
  11. PHENYLALANINE [Concomitant]
  12. MULTIPLE VITAMINS [Concomitant]
  13. PROBIOTICS [Concomitant]
  14. UNKNOWN MEDICATION [Concomitant]

REACTIONS (5)
  - CALCINOSIS [None]
  - DRUG INEFFECTIVE [None]
  - OEDEMA PERIPHERAL [None]
  - PULMONARY THROMBOSIS [None]
  - TRANSIENT ISCHAEMIC ATTACK [None]
